FAERS Safety Report 8922670 (Version 3)
Quarter: 2012Q4

REPORT INFORMATION
  Report Type: 
  Country: JP (occurrence: JP)
  Receive Date: 20121123
  Receipt Date: 20121205
  Transmission Date: 20130627
  Serious: Yes (Other)
  Sender: FDA-Public Use
  Company Number: JP-PFIZER INC-2012289943

PATIENT

DRUGS (5)
  1. VFEND [Suspect]
     Indication: PULMONARY ASPERGILLOSIS
     Dosage: 200 mg, 2x/day
     Route: 048
     Dates: start: 20121023, end: 20121110
  2. VFEND [Suspect]
     Dosage: 300 mg, 2x/day
     Route: 048
     Dates: start: 20121111
  3. GASMOTIN [Concomitant]
  4. MUCOSOLVAN [Concomitant]
  5. PARIET [Concomitant]

REACTIONS (2)
  - Gastrointestinal oedema [Recovering/Resolving]
  - Drug level decreased [Recovering/Resolving]
